FAERS Safety Report 4299831-0 (Version None)
Quarter: 2004Q1

REPORT INFORMATION
  Report Type: 
  Country: None (occurrence: None)
  Receive Date: 20040219
  Receipt Date: 20030826
  Transmission Date: 20041129
  Serious: Yes (Hospitalization)
  Sender: FDA-Public Use
  Company Number: WAES 0308USA02598

PATIENT
  Age: 51 Year
  Sex: Male
  Weight: 86 kg

DRUGS (6)
  1. PERCOCET [Concomitant]
     Indication: PERIARTHRITIS
  2. MOBIC [Concomitant]
  3. SKELAXIN [Concomitant]
  4. ZANTAC [Concomitant]
  5. VIOXX [Suspect]
     Indication: PERIARTHRITIS
     Route: 048
     Dates: start: 20010808, end: 20010901
  6. VIOXX [Suspect]
     Indication: SPINAL COLUMN STENOSIS
     Route: 048
     Dates: start: 20010808, end: 20010901

REACTIONS (17)
  - ANGINA UNSTABLE [None]
  - ARTHRALGIA [None]
  - CHEST X-RAY ABNORMAL [None]
  - CORONARY ARTERY DISEASE [None]
  - DYSPNOEA [None]
  - ECCHYMOSIS [None]
  - EJECTION FRACTION DECREASED [None]
  - EMOTIONAL DISTRESS [None]
  - FATIGUE [None]
  - GROIN PAIN [None]
  - HEART RATE INCREASED [None]
  - INFLAMMATION [None]
  - MITRAL VALVE PROLAPSE [None]
  - MYOCARDIAL INFARCTION [None]
  - MYOCARDIAL ISCHAEMIA [None]
  - PALPITATIONS [None]
  - RESPIRATORY RATE INCREASED [None]
